FAERS Safety Report 8346441-1 (Version None)
Quarter: 2012Q2

REPORT INFORMATION
  Report Type: 
  Country: None (occurrence: None)
  Receive Date: 20120509
  Receipt Date: 20120503
  Transmission Date: 20120825
  Serious: Yes (Other)
  Sender: FDA-Public Use
  Company Number: US-PFIZER INC-2012109331

PATIENT
  Sex: Female
  Weight: 74.83 kg

DRUGS (4)
  1. SYNTHROID [Concomitant]
     Dosage: 100 UG, UNK
  2. NEURONTIN [Suspect]
     Indication: HOT FLUSH
     Dosage: UNK
     Route: 048
     Dates: start: 20100101
  3. SYNTHROID [Concomitant]
     Indication: HYPOTHYROIDISM
     Dosage: 50 UG UNK
     Dates: start: 20080101
  4. NEURONTIN [Suspect]
     Indication: BREAST CANCER FEMALE
     Dosage: 1200 MG, 3X/DAY
     Dates: end: 20110601

REACTIONS (11)
  - CONFUSIONAL STATE [None]
  - HOT FLUSH [None]
  - SUICIDAL IDEATION [None]
  - DEPRESSION [None]
  - FRUSTRATION [None]
  - AMNESIA [None]
  - CRYING [None]
  - DRUG INEFFECTIVE [None]
  - IMPAIRED WORK ABILITY [None]
  - COGNITIVE DISORDER [None]
  - FEELING ABNORMAL [None]
